FAERS Safety Report 7358713-8 (Version None)
Quarter: 2011Q1

REPORT INFORMATION
  Report Type: 
  Country: None (occurrence: None)
  Receive Date: 20110317
  Receipt Date: 20110310
  Transmission Date: 20110831
  Serious: Yes (Hospitalization)
  Sender: FDA-Public Use
  Company Number: A0877040A

PATIENT
  Sex: Male
  Weight: 89.1 kg

DRUGS (8)
  1. ASPIRIN [Concomitant]
  2. LISINOPRIL [Concomitant]
  3. LASIX [Concomitant]
  4. AVANDAMET [Suspect]
     Indication: TYPE 2 DIABETES MELLITUS
     Route: 048
     Dates: start: 20041201, end: 20050301
  5. METFORMIN HCL [Concomitant]
  6. COREG [Concomitant]
  7. LIPITOR [Concomitant]
  8. AVANDIA [Suspect]
     Indication: DIABETES MELLITUS
     Dosage: 4MG TWICE PER DAY
     Route: 048
     Dates: start: 20050301, end: 20070301

REACTIONS (15)
  - CORONARY ARTERY DISEASE [None]
  - CARDIAC ARREST [None]
  - CORONARY ARTERY STENOSIS [None]
  - MYOCARDIAL ISCHAEMIA [None]
  - HEART INJURY [None]
  - MYOCARDIAL INFARCTION [None]
  - SICK SINUS SYNDROME [None]
  - CARDIAC FAILURE CONGESTIVE [None]
  - MITRAL VALVE CALCIFICATION [None]
  - TRICUSPID VALVE INCOMPETENCE [None]
  - FLUID OVERLOAD [None]
  - ATRIAL FIBRILLATION [None]
  - MITRAL VALVE INCOMPETENCE [None]
  - AORTIC VALVE SCLEROSIS [None]
  - FLUID RETENTION [None]
